FAERS Safety Report 5771775-4 (Version None)
Quarter: 2008Q2

REPORT INFORMATION
  Report Type: 
  Country: None (occurrence: None)
  Receive Date: 20080612
  Receipt Date: 20080612
  Transmission Date: 20081010
  Serious: Yes (Hospitalization)
  Sender: FDA-Public Use
  Company Number: None

PATIENT
  Age: 60 Year
  Sex: Male
  Weight: 94.35 kg

DRUGS (2)
  1. POTASSIUM CHLORIDE [Suspect]
     Indication: MINERAL SUPPLEMENTATION
     Dosage: 40 MEQ QID PO
     Route: 048
     Dates: start: 20080510
  2. BUMETANIDE [Suspect]
     Dosage: 2 MG TID PO
     Route: 048
     Dates: start: 20080509

REACTIONS (3)
  - HYPERKALAEMIA [None]
  - ILL-DEFINED DISORDER [None]
  - POLYURIA [None]
